FAERS Safety Report 8677479 (Version 2)
Quarter: 2012Q4

REPORT INFORMATION
  Report Type: 
  Country: NO (occurrence: NO)
  Receive Date: 20120723
  Receipt Date: 20121003
  Transmission Date: 20130627
  Serious: Yes (Disabling, Other)
  Sender: FDA-Public Use
  Company Number: PHHY2012NO061831

PATIENT
  Age: 57 None
  Sex: Female

DRUGS (3)
  1. ZOMETA [Suspect]
     Indication: BREAST CANCER METASTATIC
     Dosage: UNK
     Dates: start: 2011
  2. ZOMETA [Suspect]
     Indication: OSTEOPOROSIS
     Dates: start: 2011
  3. ZOMETA [Suspect]
     Indication: BREAST CANCER STAGE IV

REACTIONS (5)
  - Osteonecrosis of jaw [Not Recovered/Not Resolved]
  - Bone lesion [Unknown]
  - Exposed bone in jaw [Unknown]
  - Toothache [Unknown]
  - Periodontitis [Unknown]
